FAERS Safety Report 8940946 (Version 1)
Quarter: 2012Q4

REPORT INFORMATION
  Report Type: 
  Country: PT (occurrence: PT)
  Receive Date: 20121203
  Receipt Date: 20121203
  Transmission Date: 20130627
  Serious: Yes (Other)
  Sender: FDA-Public Use
  Company Number: PT-ROCHE-1160600

PATIENT
  Sex: Female

DRUGS (4)
  1. ROACTEMRA [Suspect]
     Indication: RHEUMATOID ARTHRITIS
     Route: 042
     Dates: start: 20120702
  2. ROACTEMRA [Suspect]
     Route: 065
     Dates: start: 20120802
  3. ROACTEMRA [Suspect]
     Route: 065
     Dates: start: 20121029
  4. ROACTEMRA [Suspect]
     Route: 065
     Dates: start: 20121126

REACTIONS (3)
  - Mastitis [Recovered/Resolved]
  - Limb injury [Recovered/Resolved]
  - Wound [Recovered/Resolved]
